FAERS Safety Report 24263566 (Version 3)
Quarter: 2024Q3

REPORT INFORMATION
  Report Type: Spontaneous
  Country: PT (occurrence: PT)
  Receive Date: 20240829
  Receipt Date: 20240924
  Transmission Date: 20241017
  Serious: Yes (Hospitalization)
  Sender: PFIZER
  Company Number: PT-PFIZER INC-PV202400111165

PATIENT
  Age: 47 Year
  Sex: Female

DRUGS (7)
  1. IRINOTECAN HYDROCHLORIDE [Suspect]
     Active Substance: IRINOTECAN HYDROCHLORIDE
     Indication: Ductal adenocarcinoma of pancreas
     Dosage: FIRST DAY OF THE FIRST CYCLE OF CHEMOTHERAPY; 150 MG/M2, 220.5 MG IN 250 ML NACL 0.9%; ONCE
     Route: 042
     Dates: start: 20221227, end: 20221227
  2. LEUCOVORIN [Suspect]
     Active Substance: LEUCOVORIN\LEUCOVORIN CALCIUM
     Indication: Ductal adenocarcinoma of pancreas
     Dosage: FIRST DAY OF THE FIRST CYCLE OF CHEMOTHERAPY, 295 MG IN 250 ML; ONCE
     Route: 042
     Dates: start: 20221227, end: 20221227
  3. FLUOROURACIL [Suspect]
     Active Substance: FLUOROURACIL
     Indication: Ductal adenocarcinoma of pancreas
     Dosage: DAY 1 OF CYCLE 1  2400 MG/M2, INFUSION IMPLANTOFIX FOR 46 HOURS - 3528 MG IN 25 ML NACL 0.9%
     Route: 042
     Dates: start: 20221227, end: 202212
  4. OXALIPLATIN [Suspect]
     Active Substance: OXALIPLATIN
     Indication: Ductal adenocarcinoma of pancreas
     Dosage: FIRST DAY OF THE FIRST CYCLE OF CHEMOTHERAPY; 85 MG/M2, 125 MG IN 250 ML OF 5% GLUCOSE; ONCE
     Route: 042
     Dates: start: 20221227, end: 20221227
  5. DEXTROSE [Concomitant]
     Active Substance: DEXTROSE\DEXTROSE MONOHYDRATE
     Dosage: FIRST DAY OF THE FIRST CYCLE OF CHEMOTHERAPY; 85 MG/M2, 125 MG IN 250 ML OF 5% GLUCOSE; ONCE
     Route: 042
     Dates: start: 20221227, end: 20221227
  6. SODIUM CHLORIDE [Concomitant]
     Active Substance: SODIUM CHLORIDE
     Dosage: FIRST DAY OF FIRST CYCLE, 2400MG/M2, IMPLANTOFIX FOR 46 HOURS - 3528 MG IN 25ML NACL 0.9%; ONCE
     Route: 042
     Dates: start: 20221227, end: 20221227
  7. SODIUM CHLORIDE [Concomitant]
     Active Substance: SODIUM CHLORIDE
     Dosage: FIRST DAY OF FIRST CYCLE OF CHEMOTHERAPY; 150MG/M2, 220.5MG IN 250ML NACL 0.9%; ONCE
     Route: 042
     Dates: start: 20221227, end: 20221227

REACTIONS (2)
  - Cytotoxic lesions of corpus callosum [Recovered/Resolved]
  - Off label use [Unknown]

NARRATIVE: CASE EVENT DATE: 20221227
